FAERS Safety Report 8259997-4 (Version None)
Quarter: 2012Q2

REPORT INFORMATION
  Report Type: 
  Country: None (occurrence: None)
  Receive Date: 20120404
  Receipt Date: 20120326
  Transmission Date: 20120825
  Serious: Yes (Other)
  Sender: FDA-Public Use
  Company Number: JP-SANOFI-AVENTIS-2012SA021801

PATIENT
  Age: 54 Year
  Sex: Female

DRUGS (7)
  1. PLAVIX [Suspect]
     Route: 048
     Dates: start: 20081129
  2. ASPIRIN [Concomitant]
     Route: 048
     Dates: start: 20081128
  3. PERINDOPRIL ERBUMINE [Concomitant]
     Route: 048
     Dates: start: 20081129
  4. PLAVIX [Suspect]
     Route: 048
     Dates: start: 20081129
  5. PLAVIX [Suspect]
     Route: 048
     Dates: start: 20081128, end: 20081128
  6. PLAVIX [Suspect]
     Indication: ACUTE CORONARY SYNDROME
     Route: 048
     Dates: start: 20081128, end: 20081128
  7. HEPARIN [Concomitant]
     Dosage: DOSE:15000 UNIT(S)
     Route: 042
     Dates: start: 20081128

REACTIONS (2)
  - REOCCLUSION [None]
  - IN-STENT CORONARY ARTERY RESTENOSIS [None]
